FAERS Safety Report 17483330 (Version 1)
Quarter: 2020Q1

REPORT INFORMATION
  Report Type: Spontaneous
  Country: US (occurrence: US)
  Receive Date: 20200229
  Receipt Date: 20200229
  Transmission Date: 20200409
  Serious: No
  Sender: FDA-Public Use
  Company Number: None

PATIENT
  Age: 37 Year
  Sex: Female
  Weight: 105.75 kg

DRUGS (5)
  1. TYLENOL [Concomitant]
     Active Substance: ACETAMINOPHEN
  2. TUMS [Concomitant]
     Active Substance: CALCIUM CARBONATE
  3. TAMSULOSIN 0.4MG CAPSULES [Suspect]
     Active Substance: TAMSULOSIN
     Indication: NEPHROLITHIASIS
     Dosage: ?          QUANTITY:1 CAPSULE(S);?
     Route: 048
     Dates: start: 20200221, end: 20200222
  4. MULTIVITAMIN [Concomitant]
     Active Substance: VITAMINS
  5. KETOROLAC [Concomitant]
     Active Substance: KETOROLAC TROMETHAMINE

REACTIONS (7)
  - Pain [None]
  - Extra dose administered [None]
  - Myalgia [None]
  - Coordination abnormal [None]
  - Chest discomfort [None]
  - Chest pain [None]
  - Dizziness [None]

NARRATIVE: CASE EVENT DATE: 20200222
